FAERS Safety Report 8309455-3 (Version None)
Quarter: 2012Q2

REPORT INFORMATION
  Report Type: 
  Country: None (occurrence: None)
  Receive Date: 20120425
  Receipt Date: 20120416
  Transmission Date: 20120825
  Serious: Yes (Life-Threatening, Hospitalization, Other)
  Sender: FDA-Public Use
  Company Number: JP-CELGENEUS-087-50794-12020931

PATIENT
  Age: 74 Year
  Sex: Female
  Weight: 50 kg

DRUGS (10)
  1. DEPAS [Concomitant]
     Route: 065
  2. MAGMITT [Concomitant]
     Route: 065
  3. AMOBAN [Concomitant]
     Route: 065
  4. PURSENNID [Concomitant]
     Route: 065
  5. MAXIPIME [Concomitant]
     Route: 065
     Dates: start: 20110908, end: 20110910
  6. LEVOFLOXACIN [Concomitant]
     Route: 065
     Dates: start: 20110913
  7. VIDAZA [Suspect]
     Indication: MYELODYSPLASTIC SYNDROME
     Dosage: 75 MILLIGRAM/SQ. METER
     Route: 041
     Dates: start: 20110907, end: 20110912
  8. VIDAZA [Suspect]
     Dosage: 37.5 MILLIGRAM/SQ. METER
     Route: 041
     Dates: start: 20111021, end: 20111025
  9. LOSARTAN POTASSIUM AND HYDROCHLOROTHIAZIDE [Concomitant]
     Route: 065
  10. NEUTROGIN [Concomitant]
     Route: 065
     Dates: start: 20110929

REACTIONS (4)
  - FEBRILE NEUTROPENIA [None]
  - NEUTROPHIL COUNT DECREASED [None]
  - BLAST CELL COUNT INCREASED [None]
  - WHITE BLOOD CELL COUNT DECREASED [None]
